FAERS Safety Report 7194271-9 (Version None)
Quarter: 2010Q4

REPORT INFORMATION
  Report Type: 
  Country: None (occurrence: None)
  Receive Date: 20101223
  Receipt Date: 20101209
  Transmission Date: 20110411
  Serious: Yes (Hospitalization, Other)
  Sender: FDA-Public Use
  Company Number: PHEH2008US04279

PATIENT
  Sex: Male
  Weight: 108.84 kg

DRUGS (30)
  1. ZOMETA [Suspect]
     Dosage: UNK
     Dates: start: 20031001, end: 20040901
  2. ADVIL [Concomitant]
     Dosage: UNK / PRN
  3. PERCOCET [Concomitant]
  4. AMOXICILLIN [Concomitant]
     Dosage: 500MG, 1 TABLET 4 X DAY
  5. ACETAMINOPHEN [Concomitant]
  6. CHEMOTHERAPEUTICS NOS [Concomitant]
     Route: 048
  7. PLAVIX [Concomitant]
  8. ASPIRIN [Concomitant]
  9. DILAUDID [Concomitant]
     Indication: PAIN
  10. LOPRESSOR [Concomitant]
  11. GLYBURIDE [Concomitant]
  12. LIPITOR [Concomitant]
  13. PRILOSEC [Concomitant]
  14. LANTUS [Concomitant]
  15. SUTENT [Concomitant]
  16. GLIPIZIDE [Concomitant]
  17. METOPROLOL TARTRATE [Concomitant]
  18. FLAGYL [Concomitant]
  19. LEVAQUIN [Concomitant]
  20. PROTONIX [Concomitant]
  21. MAALOX                                  /NET/ [Concomitant]
  22. OMEPRAZOLE [Concomitant]
  23. ASACOL [Concomitant]
     Indication: COLITIS
  24. LOVENOX [Concomitant]
  25. LASIX [Concomitant]
     Dosage: 20 MG, UNK
  26. INTERFERON ALFA-2A [Concomitant]
  27. ERYTHROMYCIN [Concomitant]
     Dosage: 500 UNK, UNK
  28. PERIDEX [Concomitant]
     Dosage: 10 MG, BID
  29. RADIATION [Concomitant]
  30. MESALAMINE [Concomitant]

REACTIONS (63)
  - ABDOMINAL PAIN UPPER [None]
  - ABSCESS ORAL [None]
  - ADRENAL MASS [None]
  - ANAEMIA [None]
  - ANHEDONIA [None]
  - ANXIETY [None]
  - ASTHENIA [None]
  - ATELECTASIS [None]
  - BILIARY COLIC [None]
  - CARDIAC FAILURE CONGESTIVE [None]
  - CHOLECYSTECTOMY [None]
  - CHOLECYSTITIS ACUTE [None]
  - CHOLELITHIASIS [None]
  - CORONARY ANGIOPLASTY [None]
  - CORONARY ARTERY STENOSIS [None]
  - DEBRIDEMENT [None]
  - DEHYDRATION [None]
  - DIARRHOEA HAEMORRHAGIC [None]
  - DISABILITY [None]
  - DIVERTICULUM [None]
  - DYSPNOEA EXERTIONAL [None]
  - EMPHYSEMA [None]
  - EYELID CYST [None]
  - EYELID PTOSIS [None]
  - FATIGUE [None]
  - GASTROINTESTINAL ANGIODYSPLASIA [None]
  - GASTROOESOPHAGEAL REFLUX DISEASE [None]
  - HEPATIC STEATOSIS [None]
  - HIATUS HERNIA [None]
  - HORDEOLUM [None]
  - INFLAMMATORY BOWEL DISEASE [None]
  - INJURY [None]
  - JAW OPERATION [None]
  - LYMPHADENOPATHY [None]
  - METASTASES TO LIVER [None]
  - METASTASES TO LUNG [None]
  - MYOCARDIAL INFARCTION [None]
  - NYSTAGMUS [None]
  - ORTHOPNOEA [None]
  - OSTEOARTHRITIS [None]
  - OSTEOLYSIS [None]
  - OSTEONECROSIS OF JAW [None]
  - PAIN [None]
  - PALLOR [None]
  - PANCREATITIS [None]
  - PAPILLOMA [None]
  - PLEURAL FIBROSIS [None]
  - PSYCHIATRIC SYMPTOM [None]
  - PULMONARY ARTERIAL HYPERTENSION [None]
  - PULMONARY ARTERY DILATATION [None]
  - PULMONARY MASS [None]
  - RENAL CYST [None]
  - RENAL FAILURE [None]
  - RIB FRACTURE [None]
  - SEBORRHOEIC KERATOSIS [None]
  - SEQUESTRECTOMY [None]
  - SINUS TACHYCARDIA [None]
  - STENT PLACEMENT [None]
  - TOOTH EXTRACTION [None]
  - TOOTHACHE [None]
  - VEIN DISORDER [None]
  - VOMITING [None]
  - WEIGHT INCREASED [None]
